FAERS Safety Report 8158454-3 (Version None)
Quarter: 2012Q1

REPORT INFORMATION
  Report Type: 
  Country: None (occurrence: None)
  Receive Date: 20120223
  Receipt Date: 20120217
  Transmission Date: 20120608
  Serious: Yes (Other)
  Sender: FDA-Public Use
  Company Number: US-PFIZER INC-2011091063

PATIENT
  Sex: Female
  Weight: 63.5 kg

DRUGS (17)
  1. FLOVENT [Concomitant]
     Indication: ASTHMA
     Dosage: UNK
  2. VICODIN [Concomitant]
     Indication: HEADACHE
     Dosage: [HYDROCODONE BITARTRATE 5MG]/[ACETAMINOPHEN 500MG]
  3. AMBIEN [Concomitant]
     Dosage: UNK
  4. SINGULAIR [Concomitant]
     Indication: ASTHMA
     Dosage: 10 MG, 2X/DAY
  5. LAMICTAL [Concomitant]
     Indication: HEADACHE
     Dosage: UNK
  6. ZYRTEC-D 12 HOUR [Concomitant]
     Indication: ASTHMA
     Dosage: UNK
  7. KETOPROFEN [Concomitant]
     Indication: PAIN
     Dosage: 50 UNK, UNK
  8. LYRICA [Suspect]
     Indication: TRIGEMINAL NEURALGIA
     Dosage: 75 MG, 2X/DAY
     Route: 048
     Dates: start: 20101216
  9. AMITRIPTYLINE [Concomitant]
     Dosage: 20 MG, UNK
  10. OXCARBAZEPINE [Concomitant]
     Indication: FACIAL PAIN
     Dosage: 300 MG, UNK
  11. VICODIN [Concomitant]
     Indication: PAIN
  12. BUTALBITAL AND CAFFEINE AND PARACETAMOL [Concomitant]
     Indication: HEADACHE
     Dosage: [BUTALBITAL 500]/[ACETAMINOPHEN 225]/[CAFFEINE 30]
  13. CYMBALTA [Concomitant]
     Indication: TRIGEMINAL NEURALGIA
     Dosage: 60 MG, 1X/DAY
     Dates: start: 20111004
  14. LYRICA [Suspect]
     Indication: FACIAL PAIN
  15. CARBAMAZEPINE [Concomitant]
     Indication: FACIAL PAIN
     Dosage: 300 UNK, UNK
  16. PROVENTIL [Concomitant]
     Indication: ASTHMA
     Dosage: UNK
  17. ACETAMINOPHEN [Concomitant]
     Indication: HEADACHE
     Dosage: UNK

REACTIONS (5)
  - WEIGHT INCREASED [None]
  - PAIN [None]
  - OEDEMA PERIPHERAL [None]
  - FACIAL PAIN [None]
  - DYSPNOEA [None]
